FAERS Safety Report 5493983-2 (Version None)
Quarter: 2007Q4

REPORT INFORMATION
  Report Type: 
  Country: None (occurrence: None)
  Receive Date: 20071023
  Receipt Date: 20070717
  Transmission Date: 20080405
  Serious: Yes (Hospitalization, Other)
  Sender: FDA-Public Use
  Company Number: US-PFIZER INC-2007059746

PATIENT
  Sex: Female
  Weight: 81.6 kg

DRUGS (2)
  1. BEXTRA [Suspect]
     Indication: PAIN MANAGEMENT
     Route: 048
  2. BEXTRA [Suspect]
     Indication: ARTHRITIS

REACTIONS (4)
  - DEPRESSION [None]
  - HEART VALVE REPLACEMENT [None]
  - MYOCARDIAL INFARCTION [None]
  - VASCULAR OPERATION [None]
